FAERS Safety Report 9685836 (Version 1)
Quarter: 2013Q4

REPORT INFORMATION
  Report Type: Spontaneous
  Country: US (occurrence: US)
  Receive Date: 20131113
  Receipt Date: 20131113
  Transmission Date: 20140711
  Serious: No
  Sender: FDA-Public Use
  Company Number: US-PFIZER INC-2013322988

PATIENT
  Age: 53 Year
  Sex: 0

DRUGS (7)
  1. LYRICA [Suspect]
     Dosage: UNK
  2. CEFTIN [Suspect]
     Dosage: UNK
  3. CEFZIL [Suspect]
     Dosage: UNK
  4. DEMEROL [Suspect]
     Dosage: UNK
  5. LOVENOX [Suspect]
     Dosage: UNK
  6. ULTRAM [Suspect]
     Dosage: UNK
  7. ULTRACEF [Suspect]
     Dosage: UNK

REACTIONS (1)
  - Drug hypersensitivity [Unknown]
